FAERS Safety Report 9166334 (Version 2)
Quarter: 2013Q4

REPORT INFORMATION
  Report Type: Report from Study
  Country: US (occurrence: US)
  Receive Date: 20130315
  Receipt Date: 20131125
  Transmission Date: 20140711
  Serious: Yes (Hospitalization)
  Sender: FDA-Public Use
  Company Number: 2013SP000676

PATIENT
  Age: 23 Year
  Sex: Male
  Weight: 66 kg

DRUGS (1)
  1. SM-13496 [Suspect]
     Indication: SCHIZOPHRENIA
     Route: 048
     Dates: start: 20120801, end: 20120807

REACTIONS (1)
  - Psychotic disorder [Recovered/Resolved]
